FAERS Safety Report 6331128-7 (Version None)
Quarter: 2009Q3

REPORT INFORMATION
  Report Type: 
  Country: None (occurrence: None)
  Receive Date: 20090827
  Receipt Date: 20090819
  Transmission Date: 20100115
  Serious: Yes (Hospitalization, Other)
  Sender: FDA-Public Use
  Company Number: US-ROCHE-646055

PATIENT
  Sex: Female
  Weight: 63 kg

DRUGS (2)
  1. BONIVA [Suspect]
     Indication: OSTEOPOROSIS
     Route: 048
     Dates: start: 20061101, end: 20090501
  2. ATENOLOL AND CHLORTHALIDONE [Concomitant]
     Indication: HYPERTENSION
     Route: 048
     Dates: start: 20071101

REACTIONS (2)
  - ATRIAL FIBRILLATION [None]
  - RESORPTION BONE INCREASED [None]
